FAERS Safety Report 6133810-3 (Version None)
Quarter: 2009Q1

REPORT INFORMATION
  Report Type: 
  Country: None (occurrence: None)
  Receive Date: 20090326
  Receipt Date: 20090314
  Transmission Date: 20090719
  Serious: Yes (Hospitalization)
  Sender: FDA-Public Use
  Company Number: TR-ELI_LILLY_AND_COMPANY-TR200903006364

PATIENT
  Age: 59 Year
  Sex: Male

DRUGS (4)
  1. HUMALOG [Suspect]
     Indication: DIABETES MELLITUS
     Dosage: 12 IU, 3/D
     Route: 058
     Dates: start: 19980101
  2. LANTUS [Concomitant]
     Dosage: 16 IU, EVERY NIGHT
  3. ANTIHYPERTENSIVES [Concomitant]
     Indication: HYPERTENSION
  4. URSO FALK [Concomitant]
     Indication: LIVER DISORDER
     Dosage: 1250 MG, DAILY (1/D)

REACTIONS (3)
  - MYOCARDIAL INFARCTION [None]
  - SKIN EXFOLIATION [None]
  - WOUND [None]
